FAERS Safety Report 11940835 (Version 1)
Quarter: 2016Q1

REPORT INFORMATION
  Report Type: Spontaneous
  Country: GB (occurrence: GB)
  Receive Date: 20160122
  Receipt Date: 20160122
  Transmission Date: 20160526
  Serious: Yes (Death, Other)
  Sender: FDA-Public Use
  Company Number: GB-SHENZHEN TECHDOW PHARMACEUTICAL CO. LTD-GB-2016TEC0000004

PATIENT

DRUGS (3)
  1. DIAZEPAM. [Suspect]
     Active Substance: DIAZEPAM
     Indication: CORONARY ANGIOPLASTY
     Dosage: UNK
  2. VISIPAQUE [Suspect]
     Active Substance: IODIXANOL
     Indication: CORONARY ANGIOPLASTY
     Dosage: UNK
  3. HEPARIN SODIUM INJECTION USP, PRESERVATIVE FREE [Suspect]
     Active Substance: HEPARIN SODIUM
     Indication: CORONARY ANGIOPLASTY
     Dosage: UNK

REACTIONS (7)
  - Hypotension [Unknown]
  - Depressed level of consciousness [Unknown]
  - Brain stem infarction [Fatal]
  - Cerebrovascular accident [Unknown]
  - Rash [Unknown]
  - Anaphylactic reaction [Fatal]
  - Motor dysfunction [Unknown]
